FAERS Safety Report 4752985-1 (Version None)
Quarter: 2005Q3

REPORT INFORMATION
  Report Type: 
  Country: None (occurrence: None)
  Receive Date: 20050825
  Receipt Date: 20050808
  Transmission Date: 20060218
  Serious: Yes (Hospitalization)
  Sender: FDA-Public Use
  Company Number: DSA_81400_2005

PATIENT
  Age: 52 Year
  Sex: Female
  Weight: 71.2147 kg

DRUGS (7)
  1. XYREM [Suspect]
     Indication: FIBROMYALGIA
     Dosage: 4.5 G NIGHTLY PO
     Route: 048
     Dates: start: 20050101, end: 20050805
  2. XYREM [Suspect]
     Indication: SLEEP DISORDER
     Dosage: 4.5 G NIGHTLY PO
     Route: 048
     Dates: start: 20050101, end: 20050805
  3. LIDODERM [Concomitant]
  4. FLONASE [Concomitant]
  5. LEXAPRO [Concomitant]
  6. KLONOPIN [Concomitant]
  7. TENORMIN [Concomitant]

REACTIONS (4)
  - DEPRESSED LEVEL OF CONSCIOUSNESS [None]
  - PNEUMONIA ASPIRATION [None]
  - SCREAMING [None]
  - VOMITING [None]
